FAERS Safety Report 15073080 (Version 1)
Quarter: 2018Q2

REPORT INFORMATION
  Report Type: Spontaneous
  Country: BR (occurrence: BR)
  Receive Date: 20180627
  Receipt Date: 20180627
  Transmission Date: 20180711
  Serious: Yes (Other)
  Sender: FDA-Public Use
  Company Number: BR-ASTRAZENECA-2018SE80407

PATIENT
  Sex: Female

DRUGS (1)
  1. SYMBICORT [Suspect]
     Active Substance: BUDESONIDE\FORMOTEROL FUMARATE DIHYDRATE
     Indication: ASTHMATIC CRISIS
     Dosage: 320/9 MCG, AS REQUIRED AS REQUIRED
     Route: 055

REACTIONS (3)
  - Intentional product misuse [Unknown]
  - Asthmatic crisis [Unknown]
  - Drug ineffective [Unknown]
